FAERS Safety Report 24556166 (Version 1)
Quarter: 2024Q4

REPORT INFORMATION
  Report Type: Spontaneous
  Country: US (occurrence: US)
  Receive Date: 20241028
  Receipt Date: 20241028
  Transmission Date: 20250114
  Serious: No
  Sender: BAYER HEALTHCARE LLC
  Company Number: US-BAYER-2024A151605

PATIENT
  Sex: Male

DRUGS (2)
  1. MIRALAX [Suspect]
     Active Substance: POLYETHYLENE GLYCOL 3350
     Indication: Constipation
     Dosage: UNK MG
  2. Dulcolax [Concomitant]
     Indication: Constipation
     Dosage: 10 MG
     Route: 054
     Dates: start: 20240911

REACTIONS (1)
  - Drug ineffective [None]
